FAERS Safety Report 8851173 (Version 1)
Quarter: 2012Q4

REPORT INFORMATION
  Report Type: 
  Country: US (occurrence: US)
  Receive Date: 20121019
  Receipt Date: 20121019
  Transmission Date: 20130627
  Serious: Yes (Death, Hospitalization)
  Sender: FDA-Public Use
  Company Number: US-BRISTOL-MYERS SQUIBB COMPANY-16773525

PATIENT
  Age: 62 Year
  Sex: Female
  Weight: 66 kg

DRUGS (4)
  1. YERVOY [Suspect]
     Indication: MALIGNANT MELANOMA
     Dosage: last dose 6Jun12
3mg/kg, Q 3 weeks
     Route: 042
     Dates: start: 20120515, end: 20120605
  2. OMEPRAZOLE [Concomitant]
  3. XANAX [Concomitant]
  4. PHENERGAN [Concomitant]

REACTIONS (2)
  - Malignant neoplasm progression [Fatal]
  - Rash [Recovering/Resolving]
